FAERS Safety Report 14134915 (Version 1)
Quarter: 2017Q4

REPORT INFORMATION
  Report Type: Spontaneous
  Country: US (occurrence: US)
  Receive Date: 20171027
  Receipt Date: 20171027
  Transmission Date: 20180321
  Serious: No
  Sender: FDA-Public Use
  Company Number: US-MIST-TIR-2017-0806

PATIENT
  Age: 31 Year
  Sex: Female
  Weight: 58.11 kg

DRUGS (5)
  1. TIROSINT [Suspect]
     Active Substance: LEVOTHYROXINE SODIUM
     Dosage: ONE 125MCG CAPSULE DAILY
     Route: 048
  2. TIROSINT [Suspect]
     Active Substance: LEVOTHYROXINE SODIUM
     Dosage: 125 MCG TWO CAPSULES DAILY FOR THREE DAYS AND ONE CAPSULE DAILY FOR FOUR DAYS
     Route: 048
  3. TIROSINT [Suspect]
     Active Substance: LEVOTHYROXINE SODIUM
     Dosage: TWO 125MCG CAPSULES DAILY FOR THREE DAYS AND ONE CAPSULE DAILY FOR FOUR DAYS
     Route: 048
  4. TIROSINT [Suspect]
     Active Substance: LEVOTHYROXINE SODIUM
     Indication: HYPOTHYROIDISM
     Dosage: ONE 75MCG CAPSULE DAILY
     Route: 048
     Dates: start: 201607, end: 201610
  5. TIROSINT [Suspect]
     Active Substance: LEVOTHYROXINE SODIUM
     Indication: HYPOTHYROIDISM
     Dosage: ONE 125MCG CAPSULE DAILY, INTENTIONALLY SKIPPED DOSES APPROXIMATELY EVERY TWO MONTHS FOR APPROXIMATE
     Route: 048
     Dates: start: 201610

REACTIONS (3)
  - Blood thyroid stimulating hormone decreased [Unknown]
  - Blood thyroid stimulating hormone increased [Unknown]
  - Inappropriate schedule of drug administration [Unknown]

NARRATIVE: CASE EVENT DATE: 201610
